FAERS Safety Report 6838590-1 (Version None)
Quarter: 2010Q3

REPORT INFORMATION
  Report Type: 
  Country: None (occurrence: None)
  Receive Date: 20100713
  Receipt Date: 20070614
  Transmission Date: 20110219
  Serious: No
  Sender: FDA-Public Use
  Company Number: US-PFIZER INC-2007050307

PATIENT
  Sex: Female
  Weight: 72.727 kg

DRUGS (4)
  1. CHANTIX [Suspect]
     Indication: SMOKING CESSATION THERAPY
     Dates: start: 20070605
  2. LIPITOR [Concomitant]
  3. SYNTHROID [Concomitant]
  4. CITALOPRAM HYDROBROMIDE [Concomitant]

REACTIONS (3)
  - ABDOMINAL PAIN [None]
  - ERUCTATION [None]
  - NAUSEA [None]
